FAERS Safety Report 18399398 (Version 1)
Quarter: 2020Q4

REPORT INFORMATION
  Report Type: Spontaneous
  Country: GB (occurrence: GB)
  Receive Date: 20201019
  Receipt Date: 20201019
  Transmission Date: 20210114
  Serious: Yes (Other)
  Sender: FDA-Public Use
  Company Number: GB-TEVA-2020-GB-1838843

PATIENT
  Age: 64 Year
  Sex: Male
  Weight: 85 kg

DRUGS (4)
  1. OMEPRAZOLE. [Suspect]
     Active Substance: OMEPRAZOLE
     Indication: BARRETT^S OESOPHAGUS
     Dosage: 40 MG
     Route: 048
     Dates: start: 20200324, end: 20200528
  2. ALLOPURINOL. [Concomitant]
     Active Substance: ALLOPURINOL
  3. RAMIPRIL. [Concomitant]
     Active Substance: RAMIPRIL
  4. SIMVASTATIN. [Concomitant]
     Active Substance: SIMVASTATIN

REACTIONS (1)
  - Acute kidney injury [Recovered/Resolved with Sequelae]
